FAERS Safety Report 5337700-5 (Version None)
Quarter: 2007Q2

REPORT INFORMATION
  Report Type: 
  Country: None (occurrence: None)
  Receive Date: 20070315
  Receipt Date: 20060406
  Transmission Date: 20071010
  Serious: Yes (Hospitalization)
  Sender: FDA-Public Use
  Company Number: PHEH2005US12703

PATIENT
  Age: 6 Year
  Sex: Male
  Weight: 20.4 kg

DRUGS (2)
  1. TRILEPTAL [Suspect]
     Indication: CONVULSION
     Dosage: SEE IMAGE
     Route: 048
     Dates: start: 20050901, end: 20050915
  2. TRILEPTAL [Suspect]
     Indication: CONVULSION
     Dosage: SEE IMAGE
     Route: 048
     Dates: start: 20050915

REACTIONS (2)
  - CONVULSION [None]
  - MUSCLE CONTRACTIONS INVOLUNTARY [None]
